FAERS Safety Report 7029452-8 (Version None)
Quarter: 2010Q4

REPORT INFORMATION
  Report Type: 
  Country: None (occurrence: None)
  Receive Date: 20101005
  Receipt Date: 20100928
  Transmission Date: 20110411
  Serious: Yes (Death, Other)
  Sender: FDA-Public Use
  Company Number: US-AMGEN-QUU438571

PATIENT
  Sex: Female

DRUGS (2)
  1. NPLATE [Suspect]
     Indication: PRODUCT USED FOR UNKNOWN INDICATION
     Dates: start: 20100722, end: 20100812
  2. DEXAMETHASONE [Concomitant]
     Dates: start: 20061229, end: 20100204

REACTIONS (2)
  - CERVIX CARCINOMA STAGE IV [None]
  - MYELODYSPLASTIC SYNDROME [None]
